FAERS Safety Report 5076558-9 (Version None)
Quarter: 2006Q3

REPORT INFORMATION
  Report Type: 
  Country: None (occurrence: None)
  Receive Date: 20060810
  Receipt Date: 20060524
  Transmission Date: 20061208
  Serious: Yes (Hospitalization)
  Sender: FDA-Public Use
  Company Number: US-AMGEN-STX180854

PATIENT
  Sex: Male
  Weight: 116.7 kg

DRUGS (3)
  1. ENBREL [Suspect]
     Indication: PSORIATIC ARTHROPATHY
     Route: 058
     Dates: start: 20030801
  2. ENBREL [Suspect]
     Indication: PSORIASIS
  3. METHOTREXATE [Concomitant]
     Route: 048
     Dates: start: 19930101

REACTIONS (6)
  - CONDITION AGGRAVATED [None]
  - CYST [None]
  - DIABETES MELLITUS NON-INSULIN-DEPENDENT [None]
  - PERIRECTAL ABSCESS [None]
  - PSORIASIS [None]
  - WEIGHT DECREASED [None]
